FAERS Safety Report 15504213 (Version 11)
Quarter: 2019Q2

REPORT INFORMATION
  Report Type: Spontaneous
  Country: CA (occurrence: CA)
  Receive Date: 20181016
  Receipt Date: 20190619
  Transmission Date: 20190711
  Serious: Yes (Other)
  Sender: FDA-Public Use
  Company Number: CA-AMGEN-CANSP2015057703

PATIENT
  Age: 53 Year
  Sex: Female

DRUGS (21)
  1. METHOTREXATE. [Suspect]
     Active Substance: METHOTREXATE
     Indication: RHEUMATOID ARTHRITIS
     Dosage: UNK, Q2WK
     Route: 048
  2. HUMIRA [Suspect]
     Active Substance: ADALIMUMAB
     Indication: RHEUMATOID ARTHRITIS
     Dosage: 40 MILLIGRAM, Q2WK
     Route: 058
  3. HUMIRA [Suspect]
     Active Substance: ADALIMUMAB
     Dosage: 40 MILLIGRAM, QWK
     Route: 058
  4. HYDROXYCHLOROQUINE SULFATE. [Suspect]
     Active Substance: HYDROXYCHLOROQUINE SULFATE
     Indication: RHEUMATOID ARTHRITIS
     Dosage: UNK
     Route: 058
  5. PLAQUENIL [Suspect]
     Active Substance: HYDROXYCHLOROQUINE SULFATE
     Indication: RHEUMATOID ARTHRITIS
     Dosage: UNK
     Route: 065
  6. HYDROXYCHLOROQUINE [Suspect]
     Active Substance: HYDROXYCHLOROQUINE
     Indication: RHEUMATOID ARTHRITIS
     Dosage: UNK
     Route: 065
  7. ORENCIA [Suspect]
     Active Substance: ABATACEPT
     Indication: RHEUMATOID ARTHRITIS
     Dosage: 0.75 MILLIGRAM, QMO
     Route: 042
     Dates: start: 201202, end: 201402
  8. ENBREL [Suspect]
     Active Substance: ETANERCEPT
     Indication: RHEUMATOID ARTHRITIS
     Dosage: 40 MILLIGRAM, QWK
     Route: 058
  9. APO-AZATHIOPRINE [Suspect]
     Active Substance: AZATHIOPRINE
     Indication: RHEUMATOID ARTHRITIS
     Dosage: UNK
     Route: 065
  10. ENBREL [Suspect]
     Active Substance: ETANERCEPT
     Dosage: UNK
     Route: 065
  11. AZATHIOPRINE. [Suspect]
     Active Substance: AZATHIOPRINE
     Indication: RHEUMATOID ARTHRITIS
     Dosage: UNK
     Route: 065
  12. METHOTREXATE SODIUM. [Suspect]
     Active Substance: METHOTREXATE SODIUM
     Indication: RHEUMATOID ARTHRITIS
     Dosage: UNK
     Route: 058
  13. ACTEMRA [Suspect]
     Active Substance: TOCILIZUMAB
     Indication: RHEUMATOID ARTHRITIS
     Dosage: 8.0 MILLIGRAM/KILOGRAM, QMO
     Route: 042
  14. PREDNISONE. [Concomitant]
     Active Substance: PREDNISONE
     Dosage: UNK
  15. APO-HYDROXYQUINE [Suspect]
     Active Substance: HYDROXYCHLOROQUINE SULFATE
     Indication: RHEUMATOID ARTHRITIS
     Dosage: UNK
     Route: 065
  16. METHOTREXATE. [Suspect]
     Active Substance: METHOTREXATE
     Dosage: UNK
     Route: 058
  17. METHOTREXATE. [Suspect]
     Active Substance: METHOTREXATE
     Dosage: UNK
     Route: 048
  18. REMICADE [Suspect]
     Active Substance: INFLIXIMAB
     Indication: RHEUMATOID ARTHRITIS
     Dosage: UNK
     Route: 042
  19. HYDROXYCHLOROQUINE [Suspect]
     Active Substance: HYDROXYCHLOROQUINE
     Dosage: UNK
     Route: 058
  20. METHOTREXATE SODIUM. [Suspect]
     Active Substance: METHOTREXATE SODIUM
     Dosage: UNK
     Route: 048
  21. PREDNISONE. [Concomitant]
     Active Substance: PREDNISONE
     Dosage: UNK
     Route: 065

REACTIONS (6)
  - No adverse event [Unknown]
  - Joint swelling [Unknown]
  - Therapeutic product effect decreased [Not Recovered/Not Resolved]
  - Arthralgia [Unknown]
  - Arthritis [Unknown]
  - Drug ineffective [Unknown]

NARRATIVE: CASE EVENT DATE: 201505
